FAERS Safety Report 9396428 (Version 1)
Quarter: 2013Q3

REPORT INFORMATION
  Report Type: Spontaneous
  Country: US (occurrence: None)
  Receive Date: 20130708
  Receipt Date: 20130708
  Transmission Date: 20140515
  Serious: Yes (Hospitalization)
  Sender: FDA-Public Use
  Company Number: SYM-2013-05330

PATIENT
  Age: 68 Year
  Sex: Female

DRUGS (1)
  1. XENAZINE [Suspect]
     Indication: HUNTINGTON^S DISEASE
     Dosage: 25 MG EVERY MORNING, 12.5 MG AT NOON TIME, AND 12.5 EVERY EVENING, ORAL
     Route: 048
     Dates: start: 20130315

REACTIONS (4)
  - Heart rate decreased [None]
  - Blood pressure increased [None]
  - Slow response to stimuli [None]
  - Hypokinesia [None]
